FAERS Safety Report 5178898-1 (Version None)
Quarter: 2006Q4

REPORT INFORMATION
  Report Type: 
  Country: None (occurrence: None)
  Receive Date: 20061208
  Receipt Date: 20061121
  Transmission Date: 20070319
  Serious: Yes (Hospitalization)
  Sender: FDA-Public Use
  Company Number: US-2006-028100

PATIENT
  Age: 66 Year
  Sex: Male
  Weight: 102 kg

DRUGS (6)
  1. LEUKINE [Suspect]
     Indication: PROSTATE CANCER
     Dosage: 500UG/M2/DAY X2WK ON , 2WK OFF, SUBCUTANEOUS
     Route: 058
     Dates: start: 20060913
  2. TAXOTERE [Concomitant]
  3. PALVIX                 (CLOPIDOGREL SULFATE) [Concomitant]
  4. ASPIRIN [Concomitant]
  5. TENORMIN [Concomitant]
  6. NITRO-DUR [Concomitant]

REACTIONS (10)
  - ATELECTASIS [None]
  - BIFASCICULAR BLOCK [None]
  - BUNDLE BRANCH BLOCK LEFT [None]
  - BUNDLE BRANCH BLOCK RIGHT [None]
  - DYSPNOEA [None]
  - EMPHYSEMA [None]
  - ISCHAEMIA [None]
  - METASTASES TO BONE [None]
  - MYOCARDIAL INFARCTION [None]
  - SINUS TACHYCARDIA [None]
